FAERS Safety Report 9421116 (Version 1)
Quarter: 2013Q3

REPORT INFORMATION
  Report Type: Spontaneous
  Country: JP (occurrence: None)
  Receive Date: 20130724
  Receipt Date: 20130724
  Transmission Date: 20140515
  Serious: Yes (Death)
  Sender: FDA-Public Use
  Company Number: TCI2013A04183

PATIENT
  Age: 78 Year
  Sex: Male

DRUGS (9)
  1. TAKEPRON OD [Suspect]
     Indication: PROPHYLAXIS AGAINST GASTROINTESTINAL ULCER
     Route: 048
     Dates: start: 20120214, end: 20121112
  2. TAKEPRON OD [Suspect]
     Indication: DUODENAL ULCER
     Route: 048
     Dates: start: 20120214, end: 20121112
  3. TAKEPRON OD [Suspect]
     Indication: PROPHYLAXIS
     Route: 048
     Dates: start: 20120214, end: 20121112
  4. BLOPRESS (CANDESARTAN CILEXETIL) [Concomitant]
  5. BAYASPIRIN (ACETYLSALICYLIC ACID) (ACETYLSALICYLIC ACID) [Concomitant]
  6. ALLORIN (ALLOPURINOL) [Concomitant]
  7. FUROSEMIDE [Concomitant]
  8. SPIRONOLACTONE [Concomitant]
  9. SLOW-K (POTASSIUM CHLORIDE) [Concomitant]

REACTIONS (2)
  - Cardiac failure chronic [None]
  - Alcoholism [None]
